FAERS Safety Report 5474627-2 (Version None)
Quarter: 2007Q3

REPORT INFORMATION
  Report Type: 
  Country: None (occurrence: None)
  Receive Date: 20070831
  Receipt Date: 20070807
  Transmission Date: 20080115
  Serious: Yes (Life-Threatening)
  Sender: FDA-Public Use
  Company Number: 255817

PATIENT
  Age: 77 Year
  Sex: Female
  Weight: 46.3 kg

DRUGS (1)
  1. NOVOLIN 70/30 [Suspect]
     Indication: INSULIN-REQUIRING TYPE II DIABETES MELLITUS
     Dosage: 15 IU, QD, SUBCUTANEOUS, SLIDING SCALE, QD, SUBCUTANEOUS
     Route: 058
     Dates: start: 20040101

REACTIONS (1)
  - HYPOGLYCAEMIC UNCONSCIOUSNESS [None]
